FAERS Safety Report 20134507 (Version 1)
Quarter: 2021Q4

REPORT INFORMATION
  Report Type: Spontaneous
  Country: DE (occurrence: DE)
  Receive Date: 20211201
  Receipt Date: 20211201
  Transmission Date: 20220303
  Serious: Yes (Other)
  Sender: FDA-Public Use
  Company Number: DE-DCGMA-21189808

PATIENT
  Age: 55 Year
  Sex: Male
  Weight: 76 kg

DRUGS (5)
  1. AJOVY [Suspect]
     Active Substance: FREMANEZUMAB-VFRM
     Indication: Migraine
     Dosage: 225MILLIGRAM
     Route: 058
     Dates: start: 202010, end: 202012
  2. METHOTREXATE [Concomitant]
     Active Substance: METHOTREXATE
     Indication: Rheumatoid arthritis
     Dosage: 17.5 MILLIGRAM DAILY; DAILY DOSE: 17.5 MG MILLGRAM(S) EVERY WEEKS
     Route: 048
  3. TORSEMIDE [Concomitant]
     Active Substance: TORSEMIDE
     Indication: Hypertension
     Dosage: 10 DOSAGE FORMS DAILY; DAILY DOSE: 10 DF DOSAGE FORM EVERY DAYS
     Route: 048
  4. PREDNISOLONE [Concomitant]
     Active Substance: PREDNISOLONE
     Indication: Rheumatoid arthritis
     Dosage: 5 MILLIGRAM DAILY; DAILY DOSE: 5 MG MILLGRAM(S) EVERY DAYS
     Route: 048
  5. VERAPAMIL [Concomitant]
     Active Substance: VERAPAMIL HYDROCHLORIDE
     Indication: Hypertension
     Dosage: 720 DOSAGE FORMS DAILY; DAILY DOSE: 720 DF DOSAGE FORM EVERY DAYS 2 SEPARATED DOSES
     Route: 048

REACTIONS (1)
  - Rheumatoid arthritis [Recovered/Resolved]

NARRATIVE: CASE EVENT DATE: 20201110
